FAERS Safety Report 24992856 (Version 2)
Quarter: 2025Q2

REPORT INFORMATION
  Report Type: Spontaneous
  Country: CA (occurrence: CA)
  Receive Date: 20250221
  Receipt Date: 20250401
  Transmission Date: 20250717
  Serious: Yes (Congenital Anomaly, Other)
  Sender: SANOFI AVENTIS
  Company Number: CA-SA-2025SA047653

PATIENT

DRUGS (82)
  1. ARAVA [Suspect]
     Active Substance: LEFLUNOMIDE
     Indication: Foetal exposure during pregnancy
     Route: 064
  2. METFORMIN HYDROCHLORIDE [Suspect]
     Active Substance: METFORMIN HYDROCHLORIDE
     Route: 064
  3. HYDROXYCHLOROQUINE SULFATE [Suspect]
     Active Substance: HYDROXYCHLOROQUINE SULFATE
     Indication: Foetal exposure during pregnancy
     Route: 064
  4. LEFLUNOMIDE [Suspect]
     Active Substance: LEFLUNOMIDE
     Indication: Foetal exposure during pregnancy
     Route: 064
  5. HYDROCORTISONE [Suspect]
     Active Substance: HYDROCORTISONE
     Indication: Foetal exposure during pregnancy
     Route: 064
  6. FOLIC ACID [Suspect]
     Active Substance: FOLIC ACID
     Indication: Foetal exposure during pregnancy
     Route: 064
  7. ERGOCALCIFEROL [Suspect]
     Active Substance: ERGOCALCIFEROL
     Indication: Foetal exposure during pregnancy
     Route: 064
  8. DOMPERIDONE MALEATE [Suspect]
     Active Substance: DOMPERIDONE MALEATE
     Indication: Foetal exposure during pregnancy
     Route: 064
  9. DICLOFENAC SODIUM [Suspect]
     Active Substance: DICLOFENAC SODIUM
     Indication: Foetal exposure during pregnancy
     Route: 064
  10. DICLOFENAC POTASSIUM [Suspect]
     Active Substance: DICLOFENAC POTASSIUM
     Indication: Foetal exposure during pregnancy
     Route: 064
  11. CORTISONE ACETATE [Suspect]
     Active Substance: CORTISONE ACETATE
     Indication: Foetal exposure during pregnancy
     Route: 064
  12. CANDESARTAN [Suspect]
     Active Substance: CANDESARTAN
     Indication: Foetal exposure during pregnancy
     Route: 064
  13. CETIRIZINE HYDROCHLORIDE [Suspect]
     Active Substance: CETIRIZINE HYDROCHLORIDE
     Indication: Foetal exposure during pregnancy
     Route: 064
  14. ASCORBIC ACID [Suspect]
     Active Substance: ASCORBIC ACID
     Indication: Foetal exposure during pregnancy
     Route: 064
  15. TOPIRAMATE [Suspect]
     Active Substance: TOPIRAMATE
     Indication: Foetal exposure during pregnancy
     Route: 064
  16. SULFASALAZINE [Suspect]
     Active Substance: SULFASALAZINE
     Indication: Foetal exposure during pregnancy
     Route: 064
  17. RAMIPRIL [Suspect]
     Active Substance: RAMIPRIL
     Indication: Foetal exposure during pregnancy
     Route: 064
  18. PREDNISONE [Suspect]
     Active Substance: PREDNISONE
     Indication: Foetal exposure during pregnancy
     Route: 064
  19. OXYCODONE [Suspect]
     Active Substance: OXYCODONE
     Indication: Foetal exposure during pregnancy
     Route: 064
  20. MINOCYCLINE HYDROCHLORIDE [Suspect]
     Active Substance: MINOCYCLINE HYDROCHLORIDE
     Indication: Foetal exposure during pregnancy
     Route: 064
  21. METHOTREXATE [Suspect]
     Active Substance: METHOTREXATE
     Indication: Foetal exposure during pregnancy
     Route: 064
  22. NAPROXEN SODIUM [Suspect]
     Active Substance: NAPROXEN SODIUM
     Indication: Foetal exposure during pregnancy
     Route: 064
  23. METHYLPREDNISOLONE [Suspect]
     Active Substance: METHYLPREDNISOLONE
     Indication: Foetal exposure during pregnancy
     Route: 064
  24. DESOXIMETASONE [Suspect]
     Active Substance: DESOXIMETASONE
     Indication: Foetal exposure during pregnancy
     Route: 064
  25. ACETAMINOPHEN [Suspect]
     Active Substance: ACETAMINOPHEN
     Indication: Foetal exposure during pregnancy
     Route: 064
  26. ACETAMINOPHEN AND CODEINE [Suspect]
     Active Substance: ACETAMINOPHEN\CODEINE PHOSPHATE
     Indication: Foetal exposure during pregnancy
     Route: 064
  27. ACTEMRA [Suspect]
     Active Substance: TOCILIZUMAB
     Indication: Foetal exposure during pregnancy
     Route: 064
  28. ADALIMUMAB [Suspect]
     Active Substance: ADALIMUMAB
     Indication: Foetal exposure during pregnancy
     Route: 064
  29. ALENDRONATE SODIUM [Suspect]
     Active Substance: ALENDRONATE SODIUM
     Indication: Foetal exposure during pregnancy
     Route: 064
  30. ALENDRONIC ACID [Suspect]
     Active Substance: ALENDRONIC ACID
     Indication: Foetal exposure during pregnancy
     Route: 064
  31. LEFLUNOMIDE [Suspect]
     Active Substance: LEFLUNOMIDE
     Indication: Foetal exposure during pregnancy
     Route: 064
  32. PREDNISONE [Suspect]
     Active Substance: PREDNISONE
     Indication: Foetal exposure during pregnancy
     Route: 064
  33. ATOMOXETINE [Suspect]
     Active Substance: ATOMOXETINE
     Indication: Foetal exposure during pregnancy
     Route: 064
  34. AZATHIOPRINE [Suspect]
     Active Substance: AZATHIOPRINE
     Indication: Foetal exposure during pregnancy
     Route: 064
  35. BERINERT [Suspect]
     Active Substance: HUMAN C1-ESTERASE INHIBITOR
     Indication: Foetal exposure during pregnancy
     Route: 064
  36. BERINERT [Suspect]
     Active Substance: HUMAN C1-ESTERASE INHIBITOR
     Indication: Foetal exposure during pregnancy
     Route: 064
  37. BOTULINUM TOXIN TYPE A [Suspect]
     Active Substance: BOTULINUM TOXIN TYPE A
     Indication: Foetal exposure during pregnancy
     Route: 064
  38. BUTRANS [Suspect]
     Active Substance: BUPRENORPHINE
     Indication: Foetal exposure during pregnancy
     Route: 064
  39. CALCIUM ASCORBATE [Suspect]
     Active Substance: CALCIUM ASCORBATE
     Indication: Foetal exposure during pregnancy
     Route: 064
  40. CALCIUM CITRATE [Suspect]
     Active Substance: CALCIUM CITRATE
     Indication: Foetal exposure during pregnancy
     Route: 064
  41. CALCIUM GLUBIONATE [Suspect]
     Active Substance: CALCIUM GLUBIONATE
     Indication: Foetal exposure during pregnancy
     Route: 064
  42. CELEBREX [Suspect]
     Active Substance: CELECOXIB
     Indication: Foetal exposure during pregnancy
     Dosage: 2 DF, QD
     Route: 064
  43. CHLORHEXIDINE GLUCONATE [Suspect]
     Active Substance: CHLORHEXIDINE GLUCONATE
     Indication: Foetal exposure during pregnancy
     Route: 064
  44. CIMZIA [Suspect]
     Active Substance: CERTOLIZUMAB PEGOL
     Indication: Foetal exposure during pregnancy
     Route: 064
  45. COSENTYX [Suspect]
     Active Substance: SECUKINUMAB
     Indication: Foetal exposure during pregnancy
     Route: 064
  46. DICLOFENAC [Suspect]
     Active Substance: DICLOFENAC
     Indication: Foetal exposure during pregnancy
     Route: 064
  47. ENBREL [Suspect]
     Active Substance: ETANERCEPT
     Indication: Foetal exposure during pregnancy
     Dosage: 50 MG, QW
     Route: 064
  48. ERENUMAB-AOOE [Suspect]
     Active Substance: ERENUMAB-AOOE
     Indication: Foetal exposure during pregnancy
     Route: 064
  49. FLUMETHASONE [Suspect]
     Active Substance: FLUMETHASONE
     Indication: Foetal exposure during pregnancy
     Route: 064
  50. FLUMETHASONE PIVALATE [Suspect]
     Active Substance: FLUMETHASONE PIVALATE
     Indication: Foetal exposure during pregnancy
     Route: 064
  51. FOSAMAX [Suspect]
     Active Substance: ALENDRONATE SODIUM
     Indication: Foetal exposure during pregnancy
     Route: 064
  52. HAIR KERATIN AMINO ACIDS GOLD COMPLEX [Suspect]
     Active Substance: HAIR KERATIN AMINO ACIDS GOLD COMPLEX
     Indication: Foetal exposure during pregnancy
     Route: 064
  53. GOLD SODIUM THIOMALATE [Suspect]
     Active Substance: GOLD SODIUM THIOMALATE
     Indication: Foetal exposure during pregnancy
     Route: 064
  54. HUMIRA [Suspect]
     Active Substance: ADALIMUMAB
     Indication: Foetal exposure during pregnancy
     Route: 064
  55. HYDROCORTISONE PROBUTATE [Suspect]
     Active Substance: HYDROCORTISONE PROBUTATE
     Indication: Foetal exposure during pregnancy
     Route: 064
  56. HYDROXYCHLOROQUINE [Suspect]
     Active Substance: HYDROXYCHLOROQUINE
     Indication: Foetal exposure during pregnancy
     Route: 064
  57. INFLIXIMAB [Suspect]
     Active Substance: INFLIXIMAB
     Indication: Foetal exposure during pregnancy
     Route: 064
  58. ISOPROPYL ALCOHOL [Suspect]
     Active Substance: ISOPROPYL ALCOHOL
     Indication: Foetal exposure during pregnancy
     Route: 064
  59. LAMICTAL [Suspect]
     Active Substance: LAMOTRIGINE
     Indication: Foetal exposure during pregnancy
     Route: 064
  60. MAGNESIUM CITRATE [Suspect]
     Active Substance: MAGNESIUM CITRATE
     Indication: Foetal exposure during pregnancy
     Route: 064
  61. METHYLPREDNISOLONE SODIUM SUCCINATE [Suspect]
     Active Substance: METHYLPREDNISOLONE SODIUM SUCCINATE
     Indication: Foetal exposure during pregnancy
     Route: 064
  62. MINOCYCLINE [Suspect]
     Active Substance: MINOCYCLINE HYDROCHLORIDE
     Indication: Foetal exposure during pregnancy
     Route: 064
  63. CHOLECALCIFEROL [Suspect]
     Active Substance: CHOLECALCIFEROL
     Indication: Foetal exposure during pregnancy
     Route: 064
  64. MYOCHRYSINE [Suspect]
     Active Substance: GOLD SODIUM THIOMALATE
     Indication: Foetal exposure during pregnancy
     Route: 064
  65. MYRBETRIQ [Suspect]
     Active Substance: MIRABEGRON
     Indication: Foetal exposure during pregnancy
     Route: 064
  66. NAPROXEN [Suspect]
     Active Substance: NAPROXEN
     Indication: Foetal exposure during pregnancy
     Route: 064
  67. NICOTINAMIDE [Suspect]
     Active Substance: NIACINAMIDE
     Indication: Foetal exposure during pregnancy
     Route: 064
  68. NUCALA [Suspect]
     Active Substance: MEPOLIZUMAB
     Indication: Foetal exposure during pregnancy
     Route: 064
  69. ORENCIA [Suspect]
     Active Substance: ABATACEPT
     Indication: Foetal exposure during pregnancy
     Route: 064
  70. OXYCODONE TEREPHTHALATE [Suspect]
     Active Substance: OXYCODONE TEREPHTHALATE
     Indication: Foetal exposure during pregnancy
     Route: 064
  71. PERIOGARD [Suspect]
     Active Substance: CHLORHEXIDINE GLUCONATE
     Indication: Foetal exposure during pregnancy
     Route: 064
  72. PHENYLEPHRINE HYDROCHLORIDE [Suspect]
     Active Substance: PHENYLEPHRINE HYDROCHLORIDE
     Indication: Foetal exposure during pregnancy
     Route: 064
  73. PHTHALYLSULFATHIAZOLE [Suspect]
     Active Substance: PHTHALYLSULFATHIAZOLE
     Indication: Foetal exposure during pregnancy
     Route: 064
  74. PSEUDOEPHEDRINE [Suspect]
     Active Substance: PSEUDOEPHEDRINE
     Indication: Foetal exposure during pregnancy
     Route: 064
  75. ZINC [Suspect]
     Active Substance: ZINC
     Indication: Foetal exposure during pregnancy
     Route: 064
  76. CETIRIZINE HYDROCHLORIDE\PSEUDOEPHEDRINE HYDROCHLORIDE [Suspect]
     Active Substance: CETIRIZINE HYDROCHLORIDE\PSEUDOEPHEDRINE HYDROCHLORIDE
     Indication: Foetal exposure during pregnancy
     Route: 064
  77. RITUXIMAB [Suspect]
     Active Substance: RITUXIMAB
     Indication: Foetal exposure during pregnancy
     Route: 064
  78. RITUXIMAB [Suspect]
     Active Substance: RITUXIMAB
     Dosage: 2000 MG, QD
     Route: 064
  79. RITUXIMAB [Suspect]
     Active Substance: RITUXIMAB
     Dosage: 1000 MG, BID
     Route: 064
  80. SIMPONI [Suspect]
     Active Substance: GOLIMUMAB
     Indication: Foetal exposure during pregnancy
     Route: 064
  81. STELARA [Suspect]
     Active Substance: USTEKINUMAB
     Indication: Foetal exposure during pregnancy
     Route: 064
  82. XELJANZ [Suspect]
     Active Substance: TOFACITINIB CITRATE
     Indication: Foetal exposure during pregnancy
     Route: 064

REACTIONS (3)
  - Congenital anomaly [Unknown]
  - Maternal exposure during pregnancy [Unknown]
  - Foetal exposure during pregnancy [Unknown]
